FAERS Safety Report 6891739-7 (Version None)
Quarter: 2010Q3

REPORT INFORMATION
  Report Type: 
  Country: None (occurrence: None)
  Receive Date: 20100731
  Receipt Date: 20070926
  Transmission Date: 20110219
  Serious: No
  Sender: FDA-Public Use
  Company Number: US-PFIZER INC-2007073165

PATIENT
  Sex: Male
  Weight: 84.1 kg

DRUGS (6)
  1. NORVASC [Suspect]
     Indication: HYPERTENSION
     Route: 048
     Dates: start: 20050505
  2. ZETIA [Concomitant]
  3. BENICAR HCT [Concomitant]
  4. ALL OTHER THERAPEUTIC PRODUCTS [Concomitant]
  5. GEMFIBROZIL [Concomitant]
  6. ZOCOR [Concomitant]

REACTIONS (1)
  - LIBIDO DECREASED [None]
